APPROVED DRUG PRODUCT: NORTREL 7/7/7
Active Ingredient: ETHINYL ESTRADIOL; NORETHINDRONE
Strength: 0.035MG,0.035MG,0.035MG;0.5MG,0.75MG,1MG
Dosage Form/Route: TABLET;ORAL-28
Application: A075478 | Product #002 | TE Code: AB
Applicant: BARR LABORATORIES INC
Approved: Aug 30, 2002 | RLD: No | RS: No | Type: RX